FAERS Safety Report 16975483 (Version 2)
Quarter: 2019Q4

REPORT INFORMATION
  Report Type: Spontaneous
  Country: RU (occurrence: RU)
  Receive Date: 20191030
  Receipt Date: 20191108
  Transmission Date: 20200122
  Serious: Yes (Hospitalization, Other)
  Sender: FDA-Public Use
  Company Number: RU-US-PROVELL PHARMACEUTICALS LLC-9124929

PATIENT
  Age: 53 Year
  Sex: Female

DRUGS (4)
  1. EUTHYROX [Suspect]
     Active Substance: LEVOTHYROXINE SODIUM
     Indication: HYPOTHYROIDISM
     Dates: start: 2009
  2. EUTHYROX [Suspect]
     Active Substance: LEVOTHYROXINE SODIUM
     Dosage: DOSE INCREASED
     Dates: start: 2012
  3. CONCOR [Concomitant]
     Active Substance: BISOPROLOL FUMARATE
     Indication: BLOOD PRESSURE MEASUREMENT
  4. CARDIOMAGNYL [Concomitant]
     Active Substance: ASPIRIN\MAGNESIUM HYDROXIDE
     Indication: PRODUCT USED FOR UNKNOWN INDICATION

REACTIONS (10)
  - Asthenia [Recovered/Resolved]
  - Tri-iodothyronine increased [Recovered/Resolved]
  - Osteochondrosis [Recovered/Resolved]
  - Malaise [Recovered/Resolved]
  - Blood thyroid stimulating hormone increased [Recovered/Resolved]
  - Ischaemic stroke [Recovered/Resolved]
  - Thyroxine increased [Recovered/Resolved]
  - Blood thyroid stimulating hormone decreased [Recovered/Resolved]
  - Hyperhidrosis [Recovered/Resolved]
  - Decreased interest [Recovered/Resolved]

NARRATIVE: CASE EVENT DATE: 2012
